FAERS Safety Report 9557916 (Version 1)
Quarter: 2013Q3

REPORT INFORMATION
  Report Type: Spontaneous
  Country: US (occurrence: None)
  Receive Date: 20130726
  Receipt Date: 20130726
  Transmission Date: 20140515
  Serious: Yes (Hospitalization)
  Sender: FDA-Public Use
  Company Number: UTC-027316

PATIENT
  Age: 45 Year
  Sex: Female
  Weight: 105.2 kg

DRUGS (3)
  1. REMODULIN [Suspect]
     Indication: COR PULMONALE CHRONIC
     Dosage: 0.07 UG/KG, 1 IN 1 MIN
     Route: 041
     Dates: start: 20080823
  2. REMODULIN [Suspect]
     Indication: PULMONARY ARTERIAL HYPERTENSION
     Dosage: 0.07 UG/KG, 1 IN 1 MIN
     Route: 041
     Dates: start: 20080823
  3. LETAIRIS [Suspect]
     Indication: COR PULMONALE CHRONIC
     Dosage: 10 MG, 1 IN 1 D
     Route: 048
     Dates: start: 20090602

REACTIONS (1)
  - Device related infection [None]
